FAERS Safety Report 9565593 (Version 2)
Quarter: 2013Q3

REPORT INFORMATION
  Report Type: Spontaneous
  Country: US (occurrence: US)
  Receive Date: 20130930
  Receipt Date: 20130930
  Transmission Date: 20140515
  Serious: Yes (Other)
  Sender: FDA-Public Use
  Company Number: US-MYLANLABS-2013S1021667

PATIENT
  Age: 9 Year
  Sex: Female
  Weight: 29.94 kg

DRUGS (1)
  1. EPIPEN 2-PAK [Suspect]
     Indication: FOOD ALLERGY
     Route: 030
     Dates: start: 20130918, end: 20130918

REACTIONS (2)
  - Device failure [Recovered/Resolved]
  - Injection site bruising [Not Recovered/Not Resolved]
